FAERS Safety Report 7502940-3 (Version None)
Quarter: 2011Q2

REPORT INFORMATION
  Report Type: 
  Country: None (occurrence: None)
  Receive Date: 20110525
  Receipt Date: 20101012
  Transmission Date: 20111010
  Serious: No
  Sender: FDA-Public Use
  Company Number: US-NOVEN-ALL1-2010-04755

PATIENT
  Sex: Female
  Weight: 35.374 kg

DRUGS (1)
  1. DAYTRANA [Suspect]
     Dosage: 10 MG, 1X/DAY:QD
     Route: 062
     Dates: start: 20090110, end: 20090212

REACTIONS (5)
  - APPLICATION SITE VESICLES [None]
  - APPLICATION SITE PAIN [None]
  - APPLICATION SITE ERYTHEMA [None]
  - APPLICATION SITE URTICARIA [None]
  - APPLICATION SITE DERMATITIS [None]
